FAERS Safety Report 4848482-5 (Version None)
Quarter: 2005Q4

REPORT INFORMATION
  Report Type: 
  Country: None (occurrence: None)
  Receive Date: 20051208
  Receipt Date: 20051205
  Transmission Date: 20060501
  Serious: Yes (Other)
  Sender: FDA-Public Use
  Company Number: JP-SANOFI-SYNTHELABO-F01200502637

PATIENT
  Sex: Male
  Weight: 51 kg

DRUGS (3)
  1. OXALIPLATIN [Suspect]
     Indication: COLON CANCER
     Route: 042
     Dates: start: 20050729, end: 20050729
  2. FLUOROURACIL [Suspect]
     Dosage: 600 MG/M2 IV BOLUS AND 900 MG/M2 IV 22 HOURS CONTINUOUS INFUSION, Q2W
     Route: 042
     Dates: start: 20050729, end: 20050729
  3. CALCIUM LEVOFOLINATE [Suspect]
     Route: 042
     Dates: start: 20050729, end: 20050729

REACTIONS (3)
  - COMA [None]
  - LEUKOPENIA [None]
  - NEUTROPENIA [None]
